FAERS Safety Report 4879780-7 (Version None)
Quarter: 2006Q1

REPORT INFORMATION
  Report Type: 
  Country: None (occurrence: None)
  Receive Date: 20060113
  Receipt Date: 20060105
  Transmission Date: 20060701
  Serious: Yes (Hospitalization)
  Sender: FDA-Public Use
  Company Number: FR-GLAXOSMITHKLINE-B0405499A

PATIENT
  Age: 44 Year
  Sex: Female
  Weight: 48 kg

DRUGS (3)
  1. TELZIR [Suspect]
     Indication: HIV INFECTION
     Route: 048
     Dates: start: 20050914
  2. NORVIR [Suspect]
     Indication: HIV INFECTION
     Dosage: 1UNIT TWICE PER DAY
     Route: 048
     Dates: start: 20050914
  3. KALETRA [Suspect]
     Indication: HIV INFECTION
     Route: 048
     Dates: start: 20050914

REACTIONS (2)
  - DIARRHOEA [None]
  - HYPERLACTACIDAEMIA [None]
